FAERS Safety Report 8417441-8 (Version None)
Quarter: 2012Q2

REPORT INFORMATION
  Report Type: 
  Country: None (occurrence: None)
  Receive Date: 20120606
  Receipt Date: 20120525
  Transmission Date: 20120825
  Serious: Yes (Hospitalization, Other)
  Sender: FDA-Public Use
  Company Number: PHHY2012CA044979

PATIENT
  Sex: Male
  Weight: 72 kg

DRUGS (2)
  1. AMIODARONE HCL [Suspect]
     Indication: VENTRICULAR TACHYCARDIA
     Dosage: 1 MG/MIN I.V FOR 6 HRS
     Route: 042
     Dates: start: 20120522, end: 20120522
  2. AMIODARONE HCL [Suspect]
     Indication: ACUTE MYOCARDIAL INFARCTION
     Dosage: 0.5 MG/MIN FOR 18 HRS
     Route: 042

REACTIONS (9)
  - INJECTION SITE PAIN [None]
  - INJECTION SITE ERYTHEMA [None]
  - THROMBOSIS [None]
  - VEIN DISORDER [None]
  - INJECTION SITE WARMTH [None]
  - PAIN [None]
  - INFUSION SITE EXTRAVASATION [None]
  - THROMBOPHLEBITIS [None]
  - WHITE BLOOD CELL COUNT DECREASED [None]
